FAERS Safety Report 10608278 (Version 2)
Quarter: 2015Q2

REPORT INFORMATION
  Report Type: Report from Study
  Country: US (occurrence: US)
  Receive Date: 20141125
  Receipt Date: 20150420
  Transmission Date: 20150821
  Serious: Yes (Hospitalization, Other)
  Sender: FDA-Public Use
  Company Number: US-SA-2014SA159786

PATIENT
  Age: 76 Year
  Sex: Female

DRUGS (4)
  1. LANTUS [Suspect]
     Active Substance: INSULIN GLARGINE
     Indication: TYPE 2 DIABETES MELLITUS
     Route: 065
     Dates: end: 20141116
  2. LANTUS [Suspect]
     Active Substance: INSULIN GLARGINE
     Indication: TYPE 2 DIABETES MELLITUS
     Dosage: DOSE:15 UNIT(S)
     Route: 065
  3. LANTUS [Suspect]
     Active Substance: INSULIN GLARGINE
     Indication: TYPE 2 DIABETES MELLITUS
     Dosage: DOSE:32-38 UNITS
     Route: 065
  4. HUMALOG [Concomitant]
     Active Substance: INSULIN LISPRO

REACTIONS (1)
  - Pharyngeal disorder [Unknown]
